FAERS Safety Report 9354640 (Version 3)
Quarter: 2013Q3

REPORT INFORMATION
  Report Type: Spontaneous
  Country: JP (occurrence: JP)
  Receive Date: 20130618
  Receipt Date: 20130715
  Transmission Date: 20140515
  Serious: Yes (Death)
  Sender: FDA-Public Use
  Company Number: JP-ELI_LILLY_AND_COMPANY-JP201306003226

PATIENT
  Age: 55 Year
  Sex: Male
  Weight: 84.8 kg

DRUGS (6)
  1. HUMATROPE [Suspect]
     Indication: GROWTH HORMONE DEFICIENCY
     Dosage: 0.25 MG, QD
     Route: 058
     Dates: start: 20130511, end: 20130524
  2. HUMATROPE [Suspect]
     Dosage: 0.3 MG, QD
     Route: 058
     Dates: start: 20130525
  3. CORTRIL [Concomitant]
     Indication: GROWTH HORMONE DEFICIENCY
     Dosage: UNK
     Dates: start: 201208
  4. THYRADIN S [Concomitant]
     Indication: GROWTH HORMONE DEFICIENCY
     Dosage: UNK
     Dates: start: 201208
  5. DESMOPRESSIN [Concomitant]
     Indication: GROWTH HORMONE DEFICIENCY
     Dosage: UNK
     Dates: start: 201208
  6. ENARMON                            /00103102/ [Concomitant]
     Indication: HYPOGONADISM MALE
     Dosage: UNK, 2/M
     Dates: start: 201208

REACTIONS (1)
  - Sudden death [Fatal]
